FAERS Safety Report 4997747-5 (Version None)
Quarter: 2006Q2

REPORT INFORMATION
  Report Type: 
  Country: None (occurrence: None)
  Receive Date: 20060510
  Receipt Date: 20060314
  Transmission Date: 20061013
  Serious: Yes (Other)
  Sender: FDA-Public Use
  Company Number: PHBS2006BR04051

PATIENT
  Age: 37 Year
  Sex: Female
  Weight: 75 kg

DRUGS (7)
  1. TEGRETOL [Suspect]
     Indication: NEURITIS
     Dosage: 200 MG, BID
     Route: 048
     Dates: start: 20060223
  2. TEGRETOL [Suspect]
     Dosage: 200 MG, BID
     Route: 048
     Dates: start: 20060316
  3. TEGRETOL [Suspect]
     Dosage: 200 MG, TID
     Route: 048
     Dates: start: 20060319
  4. TEGRETOL [Suspect]
     Dosage: 200 MG/DAY
     Route: 048
     Dates: start: 20060314
  5. GABAPENTIN [Concomitant]
  6. NOVOFER [Concomitant]
     Indication: ANAEMIA
     Route: 065
     Dates: start: 20060101
  7. PHARMATON [Concomitant]
     Route: 065
     Dates: start: 20060401

REACTIONS (9)
  - DYSPNOEA [None]
  - GENERALISED ERYTHEMA [None]
  - GENERALISED OEDEMA [None]
  - HYPERSENSITIVITY [None]
  - PARAESTHESIA [None]
  - PRURITUS [None]
  - RASH [None]
  - RASH PAPULAR [None]
  - SWELLING FACE [None]
